FAERS Safety Report 13182702 (Version 2)
Quarter: 2017Q1

REPORT INFORMATION
  Report Type: Report from Study
  Country: JP (occurrence: JP)
  Receive Date: 20170203
  Receipt Date: 20170213
  Transmission Date: 20170428
  Serious: Yes (Other)
  Sender: FDA-Public Use
  Company Number: JP-AMGEN-JPNSP2017016774

PATIENT
  Age: 57 Year

DRUGS (11)
  1. CINACALCET HCL [Suspect]
     Active Substance: CINACALCET HYDROCHLORIDE
     Dosage: 37.5 MG, QD
     Route: 048
     Dates: start: 20160517, end: 20160613
  2. CINACALCET HCL [Suspect]
     Active Substance: CINACALCET HYDROCHLORIDE
     Dosage: 12.5 MG, QD
     Route: 048
     Dates: start: 20160705, end: 20160725
  3. CINACALCET HCL [Suspect]
     Active Substance: CINACALCET HYDROCHLORIDE
     Dosage: 12.5 MG, QD
     Route: 048
     Dates: start: 20160510, end: 20160516
  4. CINACALCET HCL [Suspect]
     Active Substance: CINACALCET HYDROCHLORIDE
     Dosage: 37.5 MG, QD
     Route: 048
     Dates: start: 20160726
  5. CINACALCET HCL [Suspect]
     Active Substance: CINACALCET HYDROCHLORIDE
     Indication: PRODUCT USED FOR UNKNOWN INDICATION
     Dosage: 25 MG, QD
     Route: 048
     Dates: start: 20160119, end: 20160208
  6. CINACALCET HCL [Suspect]
     Active Substance: CINACALCET HYDROCHLORIDE
     Dosage: 50 MG, QD
     Route: 048
     Dates: start: 20160209, end: 20160411
  7. CINACALCET HCL [Suspect]
     Active Substance: CINACALCET HYDROCHLORIDE
     Dosage: 25 MG, QD
     Route: 048
     Dates: start: 20160412, end: 20160418
  8. CINACALCET HCL [Suspect]
     Active Substance: CINACALCET HYDROCHLORIDE
     Dosage: 12.5 MG, QD
     Route: 048
     Dates: start: 20160426, end: 20160502
  9. CINACALCET HCL [Suspect]
     Active Substance: CINACALCET HYDROCHLORIDE
     Dosage: 11 MG, QD
     Route: 048
     Dates: start: 20160503, end: 20160509
  10. CINACALCET HCL [Suspect]
     Active Substance: CINACALCET HYDROCHLORIDE
     Dosage: 12.5 MG, QD
     Route: 048
     Dates: start: 20160426, end: 20160502
  11. CINACALCET HCL [Suspect]
     Active Substance: CINACALCET HYDROCHLORIDE
     Dosage: 37.5 MG, QD
     Route: 048
     Dates: start: 20160621, end: 20160627

REACTIONS (8)
  - Adjusted calcium decreased [Recovered/Resolved]
  - Periarthritis [Recovered/Resolved]
  - Procedural hypotension [Recovered/Resolved]
  - Shunt stenosis [Recovered/Resolved]
  - Headache [Recovered/Resolved]
  - Shunt occlusion [Recovered/Resolved]
  - Adjusted calcium decreased [Recovered/Resolved]
  - Adjusted calcium decreased [Recovered/Resolved]

NARRATIVE: CASE EVENT DATE: 20160305
